FAERS Safety Report 9472666 (Version 1)
Quarter: 2013Q3

REPORT INFORMATION
  Report Type: Spontaneous
  Country: FR (occurrence: FR)
  Receive Date: 20130823
  Receipt Date: 20130823
  Transmission Date: 20140515
  Serious: Yes (Hospitalization)
  Sender: FDA-Public Use
  Company Number: FR-SANOFI-AVENTIS-2013SA083443

PATIENT
  Age: 83 Year
  Sex: Male

DRUGS (7)
  1. LOVENOX [Suspect]
     Indication: PRODUCT USED FOR UNKNOWN INDICATION
     Route: 058
  2. INEXIUM [Suspect]
     Indication: PROPHYLAXIS
     Route: 048
     Dates: start: 20130331, end: 20130408
  3. MODURETIC [Suspect]
     Indication: HYPERTENSION
     Route: 048
     Dates: end: 20130402
  4. DIAMICRON [Suspect]
     Indication: TYPE 2 DIABETES MELLITUS
     Route: 048
  5. KARDEGIC [Concomitant]
     Route: 048
  6. CYMBALTA [Concomitant]
     Indication: AFFECTIVE DISORDER
     Route: 048
  7. XATRAL [Concomitant]
     Indication: BENIGN PROSTATIC HYPERPLASIA
     Route: 048

REACTIONS (3)
  - Leukopenia [Recovered/Resolved]
  - Neutropenia [Recovered/Resolved]
  - Thrombocytopenia [Recovered/Resolved]
